FAERS Safety Report 4556020-X (Version None)
Quarter: 2005Q1

REPORT INFORMATION
  Report Type: 
  Country: None (occurrence: None)
  Receive Date: 20050119
  Receipt Date: 20041213
  Transmission Date: 20050727
  Serious: Yes (Other)
  Sender: FDA-Public Use
  Company Number: PHEH2004US13251

PATIENT
  Age: 61 Year
  Sex: Female

DRUGS (9)
  1. TAXOTERE [Concomitant]
  2. LEVOTHYROXINE [Concomitant]
  3. VERAPAMIL [Concomitant]
  4. ZOCOR [Concomitant]
  5. FAMOTIDINE [Concomitant]
  6. GLIPIZIDE [Concomitant]
  7. GEMFIBROZIL [Concomitant]
  8. HYDROCHLOROTHIAZIDE [Concomitant]
  9. FEMARA [Suspect]
     Indication: BREAST CANCER
     Dosage: 2.5 MG, QD
     Dates: start: 20041201

REACTIONS (4)
  - ANGIONEUROTIC OEDEMA [None]
  - DYSPHAGIA [None]
  - DYSPHONIA [None]
  - PHARYNGOLARYNGEAL PAIN [None]
